FAERS Safety Report 24537991 (Version 1)
Quarter: 2024Q4

REPORT INFORMATION
  Report Type: Spontaneous
  Country: IT (occurrence: IT)
  Receive Date: 20241023
  Receipt Date: 20241023
  Transmission Date: 20250115
  Serious: Yes (Other)
  Sender: SANDOZ
  Company Number: IT-NOVPHSZ-PHHY2019IT128872

PATIENT
  Age: 35 Year
  Sex: Female
  Weight: 134 kg

DRUGS (1)
  1. QUETIAPINE FUMARATE [Suspect]
     Active Substance: QUETIAPINE FUMARATE
     Indication: Drug abuse
     Dosage: 250 MG, TOTAL
     Route: 048
     Dates: start: 20190214, end: 20190214

REACTIONS (3)
  - Malaise [Recovering/Resolving]
  - Feeling cold [Recovering/Resolving]
  - Somnolence [Recovering/Resolving]

NARRATIVE: CASE EVENT DATE: 20190214
